FAERS Safety Report 24096295 (Version 2)
Quarter: 2024Q3

REPORT INFORMATION
  Report Type: Spontaneous
  Country: CN (occurrence: CN)
  Receive Date: 20240716
  Receipt Date: 20240718
  Transmission Date: 20241017
  Serious: Yes (Hospitalization)
  Sender: JOHNSON AND JOHNSON
  Company Number: CN-JNJFOC-20240737855

PATIENT
  Sex: Male
  Weight: 1 kg

DRUGS (2)
  1. MOTRIN INFANTS [Suspect]
     Active Substance: IBUPROFEN
     Indication: Patent ductus arteriosus repair
     Route: 048
     Dates: start: 20240621
  2. MOTRIN INFANTS [Suspect]
     Active Substance: IBUPROFEN
     Route: 048
     Dates: start: 20240622, end: 20240623

REACTIONS (2)
  - Off label use [Unknown]
  - Urine output decreased [Recovering/Resolving]

NARRATIVE: CASE EVENT DATE: 20240621
